FAERS Safety Report 12414531 (Version 1)
Quarter: 2016Q2

REPORT INFORMATION
  Report Type: Spontaneous
  Country: GB (occurrence: GB)
  Receive Date: 20160528
  Receipt Date: 20160528
  Transmission Date: 20160815
  Serious: Yes (Hospitalization)
  Sender: FDA-Public Use
  Company Number: GB-ALKEM-001650

PATIENT
  Age: 67 Year
  Sex: Male
  Weight: 63.7 kg

DRUGS (11)
  1. PARACETAMOL [Concomitant]
     Active Substance: ACETAMINOPHEN
  2. SALBUTAMOL [Concomitant]
     Active Substance: ALBUTEROL
  3. SIMVASTATIN. [Concomitant]
     Active Substance: SIMVASTATIN
  4. DOXAZOSIN [Concomitant]
     Active Substance: DOXAZOSIN\DOXAZOSIN MESYLATE
  5. NICOTINE. [Concomitant]
     Active Substance: NICOTINE
  6. OLANZAPINE. [Suspect]
     Active Substance: OLANZAPINE
     Indication: SCHIZOPHRENIA
     Route: 048
  7. FELODIPINE. [Concomitant]
     Active Substance: FELODIPINE
  8. OMEPRAZOLE. [Suspect]
     Active Substance: OMEPRAZOLE
     Indication: PRODUCT USED FOR UNKNOWN INDICATION
     Route: 048
     Dates: end: 20160430
  9. CLENIL MODULITE [Concomitant]
     Active Substance: BECLOMETHASONE DIPROPIONATE
  10. LOSARTAN. [Concomitant]
     Active Substance: LOSARTAN
  11. BECONASE AQ [Concomitant]
     Active Substance: BECLOMETHASONE DIPROPIONATE MONOHYDRATE

REACTIONS (7)
  - Tremor [Unknown]
  - Arrhythmia [Unknown]
  - Hyponatraemia [Recovering/Resolving]
  - Feeling abnormal [Unknown]
  - Dizziness [Unknown]
  - Palpitations [Unknown]
  - Dyspnoea [Unknown]

NARRATIVE: CASE EVENT DATE: 20160430
